FAERS Safety Report 4350001-7 (Version None)
Quarter: 2004Q2

REPORT INFORMATION
  Report Type: 
  Country: None (occurrence: None)
  Receive Date: 20040428
  Receipt Date: 20040428
  Transmission Date: 20050107
  Serious: Yes (Hospitalization)
  Sender: FDA-Public Use
  Company Number: None

PATIENT
  Sex: Male

DRUGS (16)
  1. ATAZANAVIR 200 MG [Suspect]
     Indication: ACQUIRED IMMUNODEFICIENCY SYNDROME
     Dosage: 400 MG BID ORAL
     Route: 048
     Dates: start: 20040114, end: 20040204
  2. ABACAVIR/LAMVUDINE/ZIDOVUDINE [Concomitant]
  3. APAP TAB [Concomitant]
  4. AZITHROMYCIN [Concomitant]
  5. DAPSONE [Concomitant]
  6. DOCUSATE [Concomitant]
  7. EPOEITIN ALPHA [Concomitant]
  8. FERROUS SULFATE TAB [Concomitant]
  9. FLUCONAZOLE [Concomitant]
  10. ATARAX [Concomitant]
  11. COMBIVIR [Concomitant]
  12. INSULIN [Concomitant]
  13. PRAVASTATIN [Concomitant]
  14. SERVASTATIN [Concomitant]
  15. SERTRALINE [Concomitant]
  16. GABAPENTIN [Concomitant]

REACTIONS (5)
  - BLOOD GLUCOSE INCREASED [None]
  - DECREASED APPETITE [None]
  - MARKEDLY REDUCED DIETARY INTAKE [None]
  - NAUSEA [None]
  - VOMITING [None]
